FAERS Safety Report 10187012 (Version 1)
Quarter: 2014Q2

REPORT INFORMATION
  Report Type: Spontaneous
  Country: US (occurrence: US)
  Receive Date: 20140522
  Receipt Date: 20140522
  Transmission Date: 20141212
  Serious: No
  Sender: FDA-Public Use
  Company Number: US-BIOGENIDEC-2014BI016877

PATIENT
  Age: 68 Year
  Sex: Female

DRUGS (7)
  1. TECFIDERA [Suspect]
     Indication: MULTIPLE SCLEROSIS
     Route: 048
     Dates: start: 20130203
  2. ALENDRONATE SODIUM [Concomitant]
  3. AMLODIPINE BESYLATE [Concomitant]
  4. DICLOFENAC SODIUM [Concomitant]
  5. FUROSEMIDE [Concomitant]
  6. POTASSIUM CHLORIDE ER [Concomitant]
  7. PROPANTHELINE BROMIDE [Concomitant]

REACTIONS (2)
  - Night sweats [Unknown]
  - Flushing [Unknown]
